FAERS Safety Report 6397154-7 (Version None)
Quarter: 2009Q4

REPORT INFORMATION
  Report Type: 
  Country: None (occurrence: None)
  Receive Date: 20091012
  Receipt Date: 20091007
  Transmission Date: 20100525
  Serious: Yes (Hospitalization)
  Sender: FDA-Public Use
  Company Number: B0597139A

PATIENT
  Age: 34 Year
  Sex: Male

DRUGS (4)
  1. PAXIL [Suspect]
     Indication: DRUG USE FOR UNKNOWN INDICATION
     Dosage: 10MG PER DAY
     Route: 048
     Dates: start: 20071122
  2. PAXIL [Suspect]
     Dosage: 20MG PER DAY
     Route: 048
  3. PAXIL [Suspect]
     Dosage: 30MG PER DAY
     Route: 048
  4. PAXIL [Suspect]
     Dosage: 10MG PER DAY
     Route: 048
     Dates: end: 20090321

REACTIONS (4)
  - ANGER [None]
  - IRRITABILITY [None]
  - MOOD ALTERED [None]
  - PERSECUTORY DELUSION [None]
